FAERS Safety Report 10648108 (Version 2)
Quarter: 2015Q4

REPORT INFORMATION
  Report Type: Spontaneous
  Country: DE (occurrence: DE)
  Receive Date: 20141212
  Receipt Date: 20151109
  Transmission Date: 20160304
  Serious: Yes (Death, Hospitalization, Other)
  Sender: FDA-Public Use
  Company Number: DE-ALEXION PHARMACEUTICALS INC-A201404631

PATIENT
  Age: 63 Year
  Sex: Female

DRUGS (26)
  1. CASPOFUNGIN [Concomitant]
     Active Substance: CASPOFUNGIN
     Indication: HAEMOPTYSIS
     Dosage: 50 MG, QD
     Route: 042
     Dates: start: 20141123, end: 20141123
  2. ADVAGRAF [Concomitant]
     Active Substance: TACROLIMUS
     Indication: PRODUCT USED FOR UNKNOWN INDICATION
     Dosage: 3 MG, QD
     Route: 065
     Dates: start: 20140915
  3. ENTOCORT [Concomitant]
     Active Substance: BUDESONIDE
     Indication: PRODUCT USED FOR UNKNOWN INDICATION
     Dosage: 3 MG, TID
     Route: 065
     Dates: start: 20140925
  4. PREDNISOLONE. [Concomitant]
     Active Substance: PREDNISOLONE
     Indication: PRODUCT USED FOR UNKNOWN INDICATION
     Dosage: 25 MG, QD
     Route: 065
     Dates: start: 20141006
  5. FILGRASTIM [Concomitant]
     Active Substance: FILGRASTIM
     Indication: PRODUCT USED FOR UNKNOWN INDICATION
     Dosage: 30.00 MIO I.U, QD
     Route: 058
     Dates: start: 20141103, end: 20141103
  6. POSACONAZOLE [Concomitant]
     Active Substance: POSACONAZOLE
     Indication: PRODUCT USED FOR UNKNOWN INDICATION
     Dosage: 400 MG, QD
     Route: 048
     Dates: start: 20141103
  7. CASPOFUNGIN [Concomitant]
     Active Substance: CASPOFUNGIN
     Indication: ASPERGILLUS INFECTION
     Route: 065
  8. POSACONAZOLE [Concomitant]
     Active Substance: POSACONAZOLE
     Dosage: 1200 MG, QD
     Route: 048
     Dates: start: 20141108, end: 20141120
  9. CASPOFUNGIN [Concomitant]
     Active Substance: CASPOFUNGIN
     Indication: PNEUMONIA
     Dosage: 70 MG, QD
     Route: 042
     Dates: start: 20141122, end: 20141122
  10. MAGNETRANS                         /01486820/ [Concomitant]
     Indication: PRODUCT USED FOR UNKNOWN INDICATION
     Dosage: 375 MG, TID
     Route: 065
  11. URSOFALK [Concomitant]
     Active Substance: URSODIOL
     Indication: PRODUCT USED FOR UNKNOWN INDICATION
     Dosage: 500 MG, TID
     Route: 065
     Dates: start: 20141009
  12. VALCYTE [Concomitant]
     Active Substance: VALGANCICLOVIR HYDROCHLORIDE
     Dosage: 450 MG, BID
     Route: 065
     Dates: end: 20141008
  13. ACICLOVIR [Concomitant]
     Active Substance: ACYCLOVIR
     Indication: PRODUCT USED FOR UNKNOWN INDICATION
     Dosage: 400 MG, TID
     Route: 065
  14. NOXAFIL [Concomitant]
     Active Substance: POSACONAZOLE
     Indication: PRODUCT USED FOR UNKNOWN INDICATION
     Dosage: 5 ML, TID
     Route: 065
  15. SOLIRIS [Suspect]
     Active Substance: ECULIZUMAB
     Dosage: 900 MG, UNK
     Route: 042
     Dates: start: 20141118
  16. VALCYTE [Concomitant]
     Active Substance: VALGANCICLOVIR HYDROCHLORIDE
     Indication: PRODUCT USED FOR UNKNOWN INDICATION
     Dosage: 900 MG, BID
     Route: 065
     Dates: start: 20140925, end: 20141001
  17. KENTERA [Concomitant]
     Indication: DYSURIA
     Dosage: 3.9 MG, QD CHANGE EVERY 2 OR 3 DAYS
     Route: 062
  18. POSACONAZOLE [Concomitant]
     Active Substance: POSACONAZOLE
     Dosage: 800 MG, QD
     Route: 048
     Dates: start: 20141104, end: 20141107
  19. CASPOFUNGIN [Concomitant]
     Active Substance: CASPOFUNGIN
     Indication: DYSPNOEA
  20. COTRIM D.S. [Concomitant]
     Active Substance: SULFAMETHOXAZOLE\TRIMETHOPRIM
     Indication: PRODUCT USED FOR UNKNOWN INDICATION
     Dosage: 960 MG, QD ONLY MONDAY, WEDNESDAY AND FRIDAY
     Route: 065
  21. VALCYTE [Concomitant]
     Active Substance: VALGANCICLOVIR HYDROCHLORIDE
     Dosage: 900 MG, BID
     Route: 065
     Dates: start: 20141009
  22. VALCYTE [Concomitant]
     Active Substance: VALGANCICLOVIR HYDROCHLORIDE
     Dosage: 450 MG, BID
     Route: 065
     Dates: start: 20140411
  23. NOVALGIN [Concomitant]
     Active Substance: METAMIZOLE SODIUM
     Indication: DYSURIA
     Dosage: 20 GTT, FOUR TIMES A DAY
     Route: 065
     Dates: start: 20140915
  24. SOLIRIS [Suspect]
     Active Substance: ECULIZUMAB
     Indication: HAEMOLYTIC URAEMIC SYNDROME
     Dosage: 1200 MG, UNK
     Route: 042
     Dates: start: 20141103, end: 20141111
  25. PANTOPRAZOLE [Concomitant]
     Active Substance: PANTOPRAZOLE SODIUM
     Indication: PRODUCT USED FOR UNKNOWN INDICATION
     Dosage: 40 MG, QD
     Route: 065
  26. FILGRASTIM [Concomitant]
     Active Substance: FILGRASTIM
     Dosage: 30.00 MIO I.U, QD
     Route: 058
     Dates: start: 20141121, end: 20141122

REACTIONS (34)
  - Cholestasis [Unknown]
  - Gastrointestinal wall thickening [Unknown]
  - Dyspnoea [Unknown]
  - Blood lactate dehydrogenase increased [Unknown]
  - Aspergillus infection [Unknown]
  - Thrombocytopenia [Unknown]
  - Abdominal pain upper [Unknown]
  - Cytomegalovirus infection [Unknown]
  - Petechiae [Unknown]
  - Pulmonary physical examination abnormal [Unknown]
  - Gastrointestinal necrosis [Not Recovered/Not Resolved]
  - Haemorrhagic disorder [Unknown]
  - Diarrhoea [Unknown]
  - Graft versus host disease in gastrointestinal tract [Unknown]
  - Multi-organ failure [Unknown]
  - Haemoptysis [Unknown]
  - Oedema peripheral [Unknown]
  - Cough [Unknown]
  - Rales [Unknown]
  - Pneumatosis intestinalis [Fatal]
  - Condition aggravated [Unknown]
  - Pneumonia [Recovering/Resolving]
  - Melaena [Unknown]
  - C-reactive protein increased [Unknown]
  - Decubitus ulcer [Unknown]
  - Multimorbidity [Fatal]
  - Acute graft versus host disease [Unknown]
  - Gastrointestinal sounds abnormal [Unknown]
  - Skin disorder [Unknown]
  - Incorrect dose administered [Unknown]
  - Ascites [Unknown]
  - Haemorrhage [Unknown]
  - Colitis [Unknown]
  - Abdominal distension [Unknown]

NARRATIVE: CASE EVENT DATE: 20141103
